FAERS Safety Report 14692722 (Version 1)
Quarter: 2018Q1

REPORT INFORMATION
  Report Type: Spontaneous
  Country: US (occurrence: US)
  Receive Date: 20180329
  Receipt Date: 20180329
  Transmission Date: 20180509
  Serious: No
  Sender: FDA-Public Use
  Company Number: US-JNJFOC-20180309494

PATIENT
  Age: 93 Year
  Sex: Female
  Weight: 52.16 kg

DRUGS (1)
  1. TYLENOL REGULAR STRENGTH [Suspect]
     Active Substance: ACETAMINOPHEN
     Indication: MUSCLE STRAIN
     Route: 048
     Dates: start: 20180306, end: 20180306

REACTIONS (4)
  - Product use complaint [Unknown]
  - Throat irritation [Recovered/Resolved]
  - Incorrect dose administered [Unknown]
  - Product lot number issue [Unknown]

NARRATIVE: CASE EVENT DATE: 20180306
